FAERS Safety Report 17824759 (Version 1)
Quarter: 2020Q2

REPORT INFORMATION
  Report Type: Spontaneous
  Country: US (occurrence: US)
  Receive Date: 20200526
  Receipt Date: 20200526
  Transmission Date: 20200714
  Serious: Yes (Other)
  Sender: FDA-Public Use
  Company Number: None

PATIENT
  Age: 56 Year
  Sex: Female

DRUGS (4)
  1. MELOXICAM. [Concomitant]
     Active Substance: MELOXICAM
  2. LEFLUNOMIDE. [Suspect]
     Active Substance: LEFLUNOMIDE
     Indication: RHEUMATOID ARTHRITIS
     Route: 048
  3. ENBREL [Concomitant]
     Active Substance: ETANERCEPT
  4. BENAZEPRIL [Concomitant]
     Active Substance: BENAZEPRIL HYDROCHLORIDE

REACTIONS (3)
  - Hypertension [None]
  - Swelling [None]
  - Lupus-like syndrome [None]

NARRATIVE: CASE EVENT DATE: 20200412
